FAERS Safety Report 9033455 (Version 1)
Quarter: 2013Q1

REPORT INFORMATION
  Report Type: Spontaneous
  Country: CA (occurrence: CA)
  Receive Date: 20130128
  Receipt Date: 20130128
  Transmission Date: 20140127
  Serious: Yes (Hospitalization)
  Sender: FDA-Public Use
  Company Number: CA-AMGEN-CANSP2012015384

PATIENT
  Age: 78 Year
  Sex: Male
  Weight: 80 kg

DRUGS (4)
  1. XGEVA [Suspect]
     Indication: PROSTATE CANCER METASTATIC
     Dosage: 1.7 ML, QMO
     Route: 058
     Dates: start: 20100304, end: 20120105
  2. COUMADIN [Concomitant]
     Indication: DEEP VEIN THROMBOSIS
     Dosage: UNK UNK, QD
     Dates: start: 20100226
  3. GABAPENTIN [Concomitant]
     Indication: HYPOAESTHESIA
     Dosage: 300 MG, TID
     Dates: start: 20101010
  4. NALOXONE HCL W/OXYCODONE HCL [Concomitant]
     Indication: BACK PAIN
     Dosage: UNK UNK, QD
     Dates: start: 20101015

REACTIONS (1)
  - Pneumonia [Recovered/Resolved]
